FAERS Safety Report 6653313-7 (Version None)
Quarter: 2010Q1

REPORT INFORMATION
  Report Type: 
  Country: None (occurrence: None)
  Receive Date: 20100326
  Receipt Date: 20100308
  Transmission Date: 20100710
  Serious: Yes (Disabling)
  Sender: FDA-Public Use
  Company Number: FR-ROCHE-624096

PATIENT
  Sex: Female
  Weight: 50 kg

DRUGS (6)
  1. CAPECITABINE [Suspect]
     Indication: BREAST CANCER
     Dosage: GIVEN ON DAY 1 TO DAY 14 PER THREE WEEKS
     Route: 048
     Dates: start: 20080722, end: 20080820
  2. CAPECITABINE [Suspect]
     Dosage: DOSE RECEIVED IN EVENING
     Route: 048
     Dates: start: 20080908
  3. CAPECITABINE [Suspect]
     Route: 048
     Dates: start: 20080909, end: 20080916
  4. CAPECITABINE [Suspect]
     Dosage: DOSE RECEIVED IN MORNING AND THE THERAPY WAS PERMANENTLY STOPPED
     Route: 048
     Dates: start: 20080917, end: 20080917
  5. SUNITINIB MALATE [Suspect]
     Indication: BREAST CANCER
     Route: 048
     Dates: start: 20080722, end: 20080820
  6. ZOLADEX [Concomitant]
     Indication: OVARIAN FAILURE
     Dates: start: 20020101

REACTIONS (1)
  - RENAL INFARCT [None]
